FAERS Safety Report 5880134-5 (Version None)
Quarter: 2008Q3

REPORT INFORMATION
  Report Type: 
  Country: None (occurrence: None)
  Receive Date: 20080910
  Receipt Date: 20080910
  Transmission Date: 20090109
  Serious: Yes (Other)
  Sender: FDA-Public Use
  Company Number: None

PATIENT
  Age: 52 Year
  Sex: Female
  Weight: 68.0396 kg

DRUGS (1)
  1. CLOTRIMAZOLE [Suspect]
     Indication: ORAL CANDIDIASIS
     Dosage: 10 MG TROCHE/LOGENZES 5 TIMES DAILY PO, 4 DOSES
     Route: 048
     Dates: start: 20080904, end: 20080905

REACTIONS (10)
  - ARRHYTHMIA [None]
  - CHEST DISCOMFORT [None]
  - DIZZINESS [None]
  - HEADACHE [None]
  - LIP SWELLING [None]
  - NASAL OEDEMA [None]
  - OEDEMA MOUTH [None]
  - PALPITATIONS [None]
  - PRURITUS [None]
  - WHEEZING [None]
